FAERS Safety Report 4627215-1 (Version None)
Quarter: 2005Q1

REPORT INFORMATION
  Report Type: 
  Country: None (occurrence: None)
  Receive Date: 20050331
  Receipt Date: 20050315
  Transmission Date: 20050727
  Serious: Yes (Other)
  Sender: FDA-Public Use
  Company Number: A-US2005-09119

PATIENT
  Age: 39 Year
  Sex: Female
  Weight: 60.1 kg

DRUGS (17)
  1. TRACLEER [Suspect]
     Indication: RAYNAUD'S PHENOMENON
     Dosage: SEE IMAGE
     Route: 048
     Dates: start: 20040101, end: 20050102
  2. TRACLEER [Suspect]
     Indication: RAYNAUD'S PHENOMENON
     Dosage: SEE IMAGE
     Route: 048
     Dates: start: 20040406
  3. CYTOXAN [Suspect]
     Indication: INTERSTITIAL LUNG DISEASE
     Dosage: SEE IMAGE
     Route: 048
     Dates: start: 20041101, end: 20041101
  4. CYTOXAN [Suspect]
     Indication: INTERSTITIAL LUNG DISEASE
     Dosage: SEE IMAGE
     Route: 048
     Dates: start: 20041112, end: 20041101
  5. CYTOXAN [Suspect]
     Indication: INTERSTITIAL LUNG DISEASE
     Dosage: SEE IMAGE
     Route: 048
     Dates: start: 20041201, end: 20041225
  6. CYTOXAN [Suspect]
     Indication: INTERSTITIAL LUNG DISEASE
     Dosage: SEE IMAGE
     Route: 048
     Dates: start: 20041226, end: 20041227
  7. CYTOXAN [Suspect]
     Indication: INTERSTITIAL LUNG DISEASE
     Dosage: SEE IMAGE
     Route: 048
     Dates: start: 20050101
  8. NIFEDIPINE [Concomitant]
  9. ACETYLSALICYLIC ACID SRT [Concomitant]
  10. THERAGRAN (VITAMINS NOS) [Concomitant]
  11. TUMS (MAGNESIUM CARBONATE, CALCIUM CARBONATE) [Concomitant]
  12. ACIPHEX [Concomitant]
  13. CALCIUM WITH VITAMIN D (ERGOCALCIFEROL, CALCIUM SODIUM LACTATE, CALCIU [Concomitant]
  14. VITAMIN B12 [Concomitant]
  15. ALBUTEROL [Concomitant]
  16. VITAMIN B (TOCOPHEROL) [Concomitant]
  17. IRON (IRON) [Concomitant]

REACTIONS (38)
  - ALANINE AMINOTRANSFERASE INCREASED [None]
  - ARTHRALGIA [None]
  - ARTHRITIS [None]
  - ASEPTIC NECROSIS BONE [None]
  - ASPARTATE AMINOTRANSFERASE INCREASED [None]
  - BARRETT'S OESOPHAGUS [None]
  - BLOOD ALKALINE PHOSPHATASE INCREASED [None]
  - CHILLS [None]
  - CHROMATURIA [None]
  - COELIAC DISEASE [None]
  - CONDITION AGGRAVATED [None]
  - COUGH [None]
  - DISEASE PROGRESSION [None]
  - DIVERTICULUM [None]
  - DYSPNOEA [None]
  - ENDODONTIC PROCEDURE [None]
  - FEELING HOT [None]
  - GASTROENTERITIS HELICOBACTER [None]
  - GASTROINTESTINAL HAEMORRHAGE [None]
  - GINGIVAL DISORDER [None]
  - HEADACHE [None]
  - HIATUS HERNIA [None]
  - HYPOAESTHESIA ORAL [None]
  - INFLAMMATION [None]
  - INTERSTITIAL LUNG DISEASE [None]
  - IRON DEFICIENCY ANAEMIA [None]
  - OEDEMA PERIPHERAL [None]
  - PAIN IN EXTREMITY [None]
  - PHOTOPHOBIA [None]
  - PITTING OEDEMA [None]
  - PULMONARY FIBROSIS [None]
  - PYREXIA [None]
  - RALES [None]
  - RAYNAUD'S PHENOMENON [None]
  - RESPIRATORY TRACT INFECTION [None]
  - TELANGIECTASIA [None]
  - TONGUE DISCOLOURATION [None]
  - WHITE BLOOD CELLS URINE POSITIVE [None]
